FAERS Safety Report 4530552-2 (Version None)
Quarter: 2004Q4

REPORT INFORMATION
  Report Type: 
  Country: None (occurrence: None)
  Receive Date: 20041216
  Receipt Date: 20041130
  Transmission Date: 20050328
  Serious: Yes (Death, Other)
  Sender: FDA-Public Use
  Company Number: JP_041004753

PATIENT
  Age: 82 Year
  Sex: Male

DRUGS (10)
  1. ONCOVIN [Suspect]
     Indication: DIFFUSE LARGE B-CELL LYMPHOMA
     Dosage: 1.5 MG OTHER
     Route: 050
     Dates: start: 20040728, end: 20041005
  2. PINORUBIN (PIRARUBICIN) [Concomitant]
  3. CYCLOPHOSPHAMIDE [Concomitant]
  4. RITUXAN 9RITUXIMAB0 [Concomitant]
  5. PREDNISOLONE [Concomitant]
  6. GASTER (FAMOTIDINE) [Concomitant]
  7. BAKTAR [Concomitant]
  8. MUCOSTA (REBAMIPIDE) [Concomitant]
  9. BIOFERMIN R 9STREPTOCOCCUS FAECALIS0 [Concomitant]
  10. ISODINE (POVIDONE-IODINE) [Concomitant]

REACTIONS (9)
  - ACUTE MYOCARDIAL INFARCTION [None]
  - ALOPECIA [None]
  - ANOREXIA [None]
  - CARDIAC ARREST [None]
  - GINGIVAL ABSCESS [None]
  - PANCYTOPENIA [None]
  - PHARYNGOLARYNGEAL PAIN [None]
  - SEPSIS [None]
  - STOMATITIS [None]
